FAERS Safety Report 10946203 (Version 1)
Quarter: 2015Q1

REPORT INFORMATION
  Report Type: Spontaneous
  Country: US (occurrence: US)
  Receive Date: 20150323
  Receipt Date: 20150323
  Transmission Date: 20150721
  Serious: No
  Sender: FDA-Public Use
  Company Number: US-BAYER-2015-060445

PATIENT
  Age: 16 Year
  Sex: Female

DRUGS (1)
  1. BEYAZ [Suspect]
     Active Substance: DROSPIRENONE\ETHINYL ESTRADIOL\LEVOMEFOLATE CALCIUM
     Indication: ACNE
     Dosage: 1 DF, QD
     Route: 048
     Dates: start: 201501, end: 201503

REACTIONS (1)
  - Abnormal withdrawal bleeding [None]

NARRATIVE: CASE EVENT DATE: 201503
